FAERS Safety Report 20065029 (Version 1)
Quarter: 2021Q4

REPORT INFORMATION
  Report Type: Spontaneous
  Country: CN (occurrence: None)
  Receive Date: 20211113
  Receipt Date: 20211113
  Transmission Date: 20220303
  Serious: Yes (Other)
  Sender: FDA-Public Use
  Company Number: CN-ROCHE-2953592

PATIENT
  Age: 67 Year
  Sex: Male

DRUGS (1)
  1. ALECTINIB [Suspect]
     Active Substance: ALECTINIB
     Indication: Lung neoplasm malignant
     Route: 048
     Dates: start: 20211104

REACTIONS (2)
  - Coma [Unknown]
  - Cold sweat [Unknown]

NARRATIVE: CASE EVENT DATE: 20211108
